FAERS Safety Report 15940118 (Version 1)
Quarter: 2019Q1

REPORT INFORMATION
  Report Type: Spontaneous
  Country: NL (occurrence: NL)
  Receive Date: 20190208
  Receipt Date: 20190208
  Transmission Date: 20190417
  Serious: Yes (Life-Threatening)
  Sender: FDA-Public Use
  Company Number: NL-TEVA-2019-NL-1009005

PATIENT
  Sex: Female

DRUGS (7)
  1. DICLOFENAC 25 MG [Concomitant]
     Dosage: 1 DD 1 IF NECESSARY
  2. TICAGRELOR 90 MG [Concomitant]
     Dosage: 90 MILLIGRAM DAILY; 1 DD 1
  3. PERINDOPRIL 2 MG [Concomitant]
     Dosage: 2 MILLIGRAM DAILY; 1 DD 1
  4. PANTOPRAZOL 20 MG [Concomitant]
     Active Substance: PANTOPRAZOLE SODIUM
     Dosage: 20 MILLIGRAM DAILY; 1 DD 1
  5. ACETYLSALICYLZUUR 80 MG [Concomitant]
     Dosage: 80 MILLIGRAM DAILY; 1 DD 1
  6. METOPROLOL 25 MG MGA [Concomitant]
     Dosage: 25 MILLIGRAM DAILY; 1 DD 1
  7. ROSUVASTATINE FILMOMHULDE TABLET, 5 MG (MILLIGRAM) [Suspect]
     Active Substance: ROSUVASTATIN
     Indication: MYOCARDIAL INFARCTION
     Dosage: 5 MILLIGRAM DAILY; 1 TIMES DAILY 1 PIECE
     Route: 065
     Dates: start: 20180608, end: 20190101

REACTIONS (2)
  - Memory impairment [Recovering/Resolving]
  - Disturbance in attention [Recovering/Resolving]
